FAERS Safety Report 16040955 (Version 1)
Quarter: 2019Q1

REPORT INFORMATION
  Report Type: Spontaneous
  Country: US (occurrence: US)
  Receive Date: 20190306
  Receipt Date: 20190306
  Transmission Date: 20190418
  Serious: No
  Sender: FDA-Public Use
  Company Number: US-AKORN PHARMACEUTICALS-2018AKN01677

PATIENT
  Sex: Male
  Weight: 79.37 kg

DRUGS (5)
  1. BABY ASPIRIN [Concomitant]
     Active Substance: ASPIRIN
  2. DEXILANT [Concomitant]
     Active Substance: DEXLANSOPRAZOLE
  3. UNSPECIFIED LOW DOSE CHOLESTEROL MEDICATION [Concomitant]
  4. MYORISAN [Suspect]
     Active Substance: ISOTRETINOIN
     Indication: DERMAL CYST
     Dosage: 40 MG, 2X/DAY
     Route: 048
     Dates: start: 201806
  5. UNKNOWN LOW DOSE BLOOD PRESSURE MEDICATION [Concomitant]

REACTIONS (4)
  - Off label use [Not Recovered/Not Resolved]
  - Paranasal sinus hyposecretion [Not Recovered/Not Resolved]
  - Dry eye [Not Recovered/Not Resolved]
  - Meibomian gland dysfunction [Not Recovered/Not Resolved]

NARRATIVE: CASE EVENT DATE: 2018
